FAERS Safety Report 11554102 (Version 2)
Quarter: 2015Q4

REPORT INFORMATION
  Report Type: Spontaneous
  Country: US (occurrence: US)
  Receive Date: 20150925
  Receipt Date: 20151109
  Transmission Date: 20160304
  Serious: No
  Sender: FDA-Public Use
  Company Number: US-PFIZER INC-2015318699

PATIENT
  Age: 58 Year
  Sex: Female
  Weight: 47 kg

DRUGS (6)
  1. OMEPRAZOLE. [Concomitant]
     Active Substance: OMEPRAZOLE
     Indication: GASTROOESOPHAGEAL REFLUX DISEASE
     Dosage: 40 MG, DAILY
     Dates: end: 201507
  2. MAGNESIUM [Concomitant]
     Active Substance: MAGNESIUM
     Dosage: UNK
  3. VITAMIN B12 [Concomitant]
     Active Substance: CYANOCOBALAMIN
     Dosage: UNK
  4. CALCIUM [Concomitant]
     Active Substance: CALCIUM
     Dosage: UNK
  5. ESTRING [Suspect]
     Active Substance: ESTRADIOL
     Indication: VULVOVAGINAL DRYNESS
     Dosage: 2 MG, EVERY 3 MONTHS
     Route: 067
     Dates: start: 201410
  6. ESTRING [Suspect]
     Active Substance: ESTRADIOL
     Indication: DYSPAREUNIA
     Dosage: 2 MG, EVERY 3 MONTHS
     Route: 067
     Dates: start: 20150730

REACTIONS (6)
  - Vulvovaginal mycotic infection [Recovered/Resolved]
  - Vaginal discharge [Recovered/Resolved]
  - Inappropriate schedule of drug administration [Unknown]
  - Vulvovaginal discomfort [Recovered/Resolved]
  - Vulvovaginal pruritus [Not Recovered/Not Resolved]
  - Drug ineffective [Recovered/Resolved]

NARRATIVE: CASE EVENT DATE: 201410
